FAERS Safety Report 18226854 (Version 1)
Quarter: 2020Q3

REPORT INFORMATION
  Report Type: Spontaneous
  Country: US (occurrence: US)
  Receive Date: 20200902
  Receipt Date: 20200902
  Transmission Date: 20201103
  Serious: Yes (Other)
  Sender: FDA-Public Use
  Company Number: None

PATIENT
  Age: 60 Year
  Sex: Female

DRUGS (15)
  1. FAMOTIDINE. [Concomitant]
     Active Substance: FAMOTIDINE
  2. OPSUMIT [Concomitant]
     Active Substance: MACITENTAN
  3. ADDERALL [Concomitant]
     Active Substance: AMPHETAMINE ASPARTATE\AMPHETAMINE SULFATE\DEXTROAMPHETAMINE SACCHARATE\DEXTROAMPHETAMINE SULFATE
  4. TRAZODONE [Concomitant]
     Active Substance: TRAZODONE HYDROCHLORIDE
  5. EFUDEX CREAM [Concomitant]
  6. AZELASTINE NASAL SPRAY [Concomitant]
     Active Substance: AZELASTINE
  7. ADEMPAS [Suspect]
     Active Substance: RIOCIGUAT
     Indication: PULMONARY HYPERTENSION
     Route: 048
     Dates: start: 201909
  8. ESTRACE [Concomitant]
     Active Substance: ESTRADIOL
  9. NORCO [Concomitant]
     Active Substance: ACETAMINOPHEN\HYDROCODONE BITARTRATE
  10. MOTRIN [Concomitant]
     Active Substance: IBUPROFEN
  11. FLUOXETINE [Concomitant]
     Active Substance: FLUOXETINE HYDROCHLORIDE
  12. RETIN?A [Concomitant]
     Active Substance: TRETINOIN
  13. MVI [Concomitant]
     Active Substance: VITAMINS
  14. UPTRAVI [Concomitant]
     Active Substance: SELEXIPAG
  15. OXYGEN INTRANASAL [Concomitant]

REACTIONS (2)
  - Contusion [None]
  - Accident [None]

NARRATIVE: CASE EVENT DATE: 20200814
